FAERS Safety Report 20610094 (Version 1)
Quarter: 2022Q1

REPORT INFORMATION
  Report Type: Spontaneous
  Country: FR (occurrence: FR)
  Receive Date: 20220318
  Receipt Date: 20220318
  Transmission Date: 20220423
  Serious: Yes (Congenital Anomaly, Other)
  Sender: FDA-Public Use
  Company Number: FR-ABBVIE-22K-056-4321418-00

PATIENT

DRUGS (1)
  1. VALPROATE SODIUM [Suspect]
     Active Substance: VALPROATE SODIUM
     Indication: Maternal exposure timing unspecified
     Route: 064

REACTIONS (15)
  - Dysmorphism [Unknown]
  - Social (pragmatic) communication disorder [Unknown]
  - Lordosis [Unknown]
  - Scoliosis [Unknown]
  - Nasal disorder [Unknown]
  - Ear disorder [Unknown]
  - Oropharyngeal discomfort [Unknown]
  - Gastrooesophageal reflux disease [Unknown]
  - Anxiety disorder [Unknown]
  - Sleep disorder [Unknown]
  - Eating disorder [Unknown]
  - Foetal anticonvulsant syndrome [Unknown]
  - Polydactyly [Unknown]
  - Congenital foot malformation [Unknown]
  - Foetal exposure during pregnancy [Unknown]

NARRATIVE: CASE EVENT DATE: 20130205
